FAERS Safety Report 11986527 (Version 1)
Quarter: 2016Q1

REPORT INFORMATION
  Report Type: Spontaneous
  Country: US (occurrence: None)
  Receive Date: 20160201
  Receipt Date: 20160201
  Transmission Date: 20160526
  Serious: Yes (Death)
  Sender: FDA-Public Use
  Company Number: None

PATIENT
  Age: 83 Year
  Sex: Female

DRUGS (6)
  1. ACYCLOVIR (ZOVIRAX) [Concomitant]
  2. KLOR-CON [Concomitant]
     Active Substance: POTASSIUM CHLORIDE
  3. BECLOMETHAS [Concomitant]
  4. TRACLEER [Suspect]
     Active Substance: BOSENTAN
     Indication: PULMONARY ARTERIAL HYPERTENSION
     Route: 048
     Dates: start: 201411, end: 201512
  5. FOSAMAX [Concomitant]
     Active Substance: ALENDRONATE SODIUM
  6. TYLENOL [Concomitant]
     Active Substance: ACETAMINOPHEN

REACTIONS (1)
  - Fall [None]

NARRATIVE: CASE EVENT DATE: 20151217
